FAERS Safety Report 10096023 (Version 1)
Quarter: 2014Q2

REPORT INFORMATION
  Report Type: Spontaneous
  Country: US (occurrence: US)
  Receive Date: 20140422
  Receipt Date: 20140422
  Transmission Date: 20141212
  Serious: Yes (Other)
  Sender: FDA-Public Use
  Company Number: US-BAYER-2014-056537

PATIENT
  Age: 48 Year
  Sex: Female
  Weight: 56.69 kg

DRUGS (5)
  1. YAZ [Suspect]
  2. VESICARE [Concomitant]
     Dosage: 10 MG, EVERY DAY
     Route: 048
  3. CHANTIX [Concomitant]
     Route: 048
  4. LIDOCAINE [Concomitant]
     Indication: EPICONDYLITIS
     Dosage: 2 CC
  5. DEPO-MEDROL [Concomitant]
     Indication: EPICONDYLITIS
     Dosage: 2 CC

REACTIONS (1)
  - Deep vein thrombosis [None]
